FAERS Safety Report 6795828-7 (Version None)
Quarter: 2010Q2

REPORT INFORMATION
  Report Type: 
  Country: None (occurrence: None)
  Receive Date: 20100625
  Receipt Date: 20100621
  Transmission Date: 20101027
  Serious: Yes (Other)
  Sender: FDA-Public Use
  Company Number: A0856913A

PATIENT
  Age: 77 Year
  Sex: Female

DRUGS (11)
  1. PAROXETINE [Suspect]
     Indication: PANIC DISORDER
     Dosage: 40MG PER DAY
     Route: 048
  2. PAXIL [Suspect]
     Indication: DRUG USE FOR UNKNOWN INDICATION
     Route: 065
  3. POTASSIUM [Concomitant]
  4. SYNTHROID [Concomitant]
  5. SUGAR [Concomitant]
     Route: 048
  6. DILTIAZEM [Concomitant]
  7. METFORMIN [Concomitant]
  8. LORTAB [Concomitant]
  9. LASIX [Concomitant]
  10. NERVE MEDICINE [Concomitant]
  11. OXYGEN [Concomitant]

REACTIONS (6)
  - ABDOMINAL PAIN UPPER [None]
  - CRYING [None]
  - DRUG INEFFECTIVE [None]
  - MYOCARDIAL INFARCTION [None]
  - PANIC ATTACK [None]
  - SUICIDAL IDEATION [None]
